FAERS Safety Report 8310612-0 (Version None)
Quarter: 2012Q2

REPORT INFORMATION
  Report Type: 
  Country: None (occurrence: None)
  Receive Date: 20120425
  Receipt Date: 20120425
  Transmission Date: 20120825
  Serious: No
  Sender: FDA-Public Use
  Company Number: None

PATIENT
  Age: 37 Year
  Sex: Female
  Weight: 42.637 kg

DRUGS (1)
  1. TYSABRI [Suspect]
     Indication: MULTIPLE SCLEROSIS
     Route: 040
     Dates: start: 20110727, end: 20120206

REACTIONS (25)
  - URTICARIA [None]
  - NIGHT SWEATS [None]
  - BALANCE DISORDER [None]
  - IMPAIRED WORK ABILITY [None]
  - SPINAL FRACTURE [None]
  - ARTHRALGIA [None]
  - VISION BLURRED [None]
  - URINARY TRACT INFECTION [None]
  - ORAL INFECTION [None]
  - NAUSEA [None]
  - DECREASED APPETITE [None]
  - WEIGHT DECREASED [None]
  - PAIN [None]
  - ABDOMINAL PAIN UPPER [None]
  - RASH [None]
  - BREAST DISORDER [None]
  - BONE PAIN [None]
  - ORAL CANDIDIASIS [None]
  - PYREXIA [None]
  - FALL [None]
  - AMNESIA [None]
  - FATIGUE [None]
  - OEDEMA PERIPHERAL [None]
  - MUSCULAR WEAKNESS [None]
  - PRURITUS GENERALISED [None]
